FAERS Safety Report 8174752-1 (Version None)
Quarter: 2012Q1

REPORT INFORMATION
  Report Type: 
  Country: None (occurrence: None)
  Receive Date: 20120229
  Receipt Date: 20120227
  Transmission Date: 20120608
  Serious: Yes (Hospitalization, Congenital Anomaly)
  Sender: FDA-Public Use
  Company Number: DE-GLAXOSMITHKLINE-D0074626A

PATIENT
  Sex: Female
  Weight: 2.9 kg

DRUGS (6)
  1. RISPERDAL [Suspect]
     Indication: POST-TRAUMATIC STRESS DISORDER
     Dosage: 6MG PER DAY
     Route: 064
     Dates: start: 20100101, end: 20100701
  2. LORAZEPAM [Suspect]
     Indication: BORDERLINE PERSONALITY DISORDER
     Route: 064
     Dates: start: 20100101, end: 20100501
  3. TRIMIPRAMINE MALEATE [Suspect]
     Indication: DEPRESSION
     Dosage: 400MG PER DAY
     Route: 064
     Dates: start: 20100101, end: 20100901
  4. VENLAFAXINE HYDROCHLORIDE [Suspect]
     Indication: ANXIETY DISORDER
     Dosage: 150MG PER DAY
     Route: 065
     Dates: start: 20100101, end: 20100701
  5. FOLIC ACID [Concomitant]
     Indication: PROPHYLAXIS OF NEURAL TUBE DEFECT
     Route: 064
     Dates: start: 20100201, end: 20101001
  6. LAMOTRIGINE [Suspect]
     Indication: DEPRESSION
     Dosage: 200MG PER DAY
     Route: 064
     Dates: start: 20100101, end: 20100201

REACTIONS (6)
  - PARACHUTE MITRAL VALVE [None]
  - VENTRICULAR SEPTAL DEFECT [None]
  - ATRIAL SEPTAL DEFECT [None]
  - COARCTATION OF THE AORTA [None]
  - PATENT DUCTUS ARTERIOSUS [None]
  - FOETAL EXPOSURE DURING PREGNANCY [None]
